FAERS Safety Report 8533584-2 (Version None)
Quarter: 2012Q3

REPORT INFORMATION
  Report Type: 
  Country: None (occurrence: None)
  Receive Date: 20120717
  Receipt Date: 20120717
  Transmission Date: 20120928
  Serious: Yes (Life-Threatening, Hospitalization)
  Sender: FDA-Public Use
  Company Number: None

PATIENT
  Age: 75 Year
  Sex: Female
  Weight: 93.8946 kg

DRUGS (1)
  1. XARELTO [Suspect]
     Indication: THROMBOSIS PROPHYLAXIS
     Dosage: 10 MG DAILY PO
     Route: 048
     Dates: start: 20120711, end: 20120712

REACTIONS (13)
  - SEPTIC SHOCK [None]
  - RENAL FAILURE ACUTE [None]
  - HAEMODIALYSIS [None]
  - ACUTE RESPIRATORY DISTRESS SYNDROME [None]
  - RESTLESSNESS [None]
  - ATRIAL FIBRILLATION [None]
  - ACUTE RESPIRATORY FAILURE [None]
  - SEPSIS [None]
  - CARDIAC FAILURE CONGESTIVE [None]
  - RESPIRATORY DISTRESS [None]
  - RESPIRATORY ACIDOSIS [None]
  - INTESTINAL ISCHAEMIA [None]
  - PANCREATITIS ACUTE [None]
